FAERS Safety Report 5231497-5 (Version None)
Quarter: 2007Q1

REPORT INFORMATION
  Report Type: 
  Country: None (occurrence: None)
  Receive Date: 20070202
  Receipt Date: 20030505
  Transmission Date: 20070707
  Serious: Yes (Other)
  Sender: FDA-Public Use
  Company Number: GXKR2003US01044

PATIENT
  Age: 41 Year
  Sex: Male

DRUGS (5)
  1. GLIBENCLAMIDE (NGX) (GLIBENCLAMIDE) [Suspect]
     Indication: DIABETES MELLITUS NON-INSULIN-DEPENDENT
     Dosage: 1.25 MG, BID;
  2. SERTRALINE [Suspect]
     Indication: SCHIZOAFFECTIVE DISORDER
     Dosage: 150 MG,; 225 MG, 9MG, QD;
  3. RISPERIDONE [Suspect]
     Indication: SCHIZOAFFECTIVE DISORDER
     Dosage: 6 MG,
  4. BENZTROPEINE [Concomitant]
  5. FUROSEMIDE [Concomitant]

REACTIONS (10)
  - ANXIETY [None]
  - CONFUSIONAL STATE [None]
  - DEREALISATION [None]
  - DRUG INTERACTION [None]
  - FATIGUE [None]
  - FEAR [None]
  - HYPOGLYCAEMIA [None]
  - LOSS OF CONSCIOUSNESS [None]
  - MAJOR DEPRESSION [None]
  - PANIC DISORDER [None]
